FAERS Safety Report 9611991 (Version 4)
Quarter: 2014Q1

REPORT INFORMATION
  Report Type: Report from Study
  Country: KR (occurrence: KR)
  Receive Date: 20131010
  Receipt Date: 20140324
  Transmission Date: 20141002
  Serious: Yes (Hospitalization)
  Sender: FDA-Public Use
  Company Number: KR-JNJFOC-20131000900

PATIENT
  Age: 17 Year
  Sex: Male
  Weight: 53.3 kg

DRUGS (13)
  1. REMICADE [Suspect]
     Indication: COLITIS ULCERATIVE
     Route: 042
     Dates: start: 20130909, end: 20130909
  2. REMICADE [Suspect]
     Indication: COLITIS ULCERATIVE
     Route: 042
     Dates: start: 20131024, end: 20131024
  3. REMICADE [Suspect]
     Indication: COLITIS ULCERATIVE
     Route: 042
     Dates: start: 20130926, end: 20130926
  4. PENTASA [Concomitant]
     Indication: CROHN^S DISEASE
     Dosage: 2 TAB X 4
     Route: 048
     Dates: start: 20111005, end: 20120705
  5. PENTASA [Concomitant]
     Indication: CROHN^S DISEASE
     Dosage: 2 TAB X 3
     Route: 048
     Dates: start: 20120817
  6. PENTASA [Concomitant]
     Indication: CROHN^S DISEASE
     Route: 048
     Dates: start: 20130710
  7. PENTASA [Concomitant]
     Indication: CROHN^S DISEASE
     Dosage: 2 TAB X 1
     Route: 048
     Dates: start: 20120706, end: 20120817
  8. ENTOCORT [Concomitant]
     Indication: CROHN^S DISEASE
     Dosage: 1TABX1
     Route: 065
     Dates: start: 20120817, end: 20130831
  9. TRIZELE [Concomitant]
     Indication: CROHN^S DISEASE
     Route: 042
     Dates: start: 20130917, end: 20130926
  10. TRIZELE [Concomitant]
     Indication: CROHN^S DISEASE
     Route: 042
     Dates: start: 20130706, end: 20130731
  11. TRIZELE [Concomitant]
     Indication: CROHN^S DISEASE
     Route: 042
     Dates: start: 20130904, end: 20130909
  12. FLASINYL [Concomitant]
     Indication: CROHN^S DISEASE
     Route: 048
     Dates: start: 20130910, end: 20130916
  13. AZATHIOPRINE [Concomitant]
     Indication: CROHN^S DISEASE
     Route: 048
     Dates: start: 20130906

REACTIONS (2)
  - Abdominal pain [Recovered/Resolved]
  - Pyrexia [Recovered/Resolved]
